FAERS Safety Report 9402938 (Version 2)
Quarter: 2013Q3

REPORT INFORMATION
  Report Type: Spontaneous
  Country: FR (occurrence: FR)
  Receive Date: 20130716
  Receipt Date: 20130730
  Transmission Date: 20140515
  Serious: Yes (Other)
  Sender: FDA-Public Use
  Company Number: FR-TEVA-418758ISR

PATIENT
  Age: 52 Year
  Sex: Female

DRUGS (2)
  1. AMOXICILLIN W/CLAVULANIC ACID [Suspect]
     Indication: TONSILLITIS
  2. AMOXICILLIN W/CLAVULANIC ACID [Suspect]
     Indication: OROPHARYNGEAL PAIN

REACTIONS (6)
  - Acute febrile neutrophilic dermatosis [Recovered/Resolved]
  - Rash pustular [Recovered/Resolved]
  - Pyrexia [Recovered/Resolved]
  - Dermatitis bullous [Recovered/Resolved]
  - Neutrophilia [Recovered/Resolved]
  - Cholestasis [Recovered/Resolved]
